FAERS Safety Report 6322451-0 (Version None)
Quarter: 2009Q3

REPORT INFORMATION
  Report Type: 
  Country: None (occurrence: None)
  Receive Date: 20090821
  Receipt Date: 20090821
  Transmission Date: 20100115
  Serious: Yes (Hospitalization)
  Sender: FDA-Public Use
  Company Number: None

PATIENT
  Sex: Female
  Weight: 63 kg

DRUGS (6)
  1. CARBOPLATIN [Suspect]
     Dosage: 177.6 MG
  2. ERBITUX [Suspect]
     Dosage: 425 MG
  3. TAXOL [Suspect]
     Dosage: 76.5 MG
  4. LITOCANE [Concomitant]
  5. MEGACE [Concomitant]
  6. HYDROCODONE [Concomitant]

REACTIONS (6)
  - DECREASED APPETITE [None]
  - DYSPHAGIA [None]
  - EATING DISORDER [None]
  - FAILURE TO THRIVE [None]
  - OESOPHAGITIS [None]
  - WEIGHT DECREASED [None]
